FAERS Safety Report 20908200 (Version 8)
Quarter: 2023Q2

REPORT INFORMATION
  Report Type: Report from Study
  Country: US (occurrence: US)
  Receive Date: 20220602
  Receipt Date: 20230614
  Transmission Date: 20230722
  Serious: Yes (Hospitalization, Other)
  Sender: FDA-Public Use
  Company Number: US-ABBVIE-22K-163-4388058-00

PATIENT
  Sex: Female
  Weight: 85.275 kg

DRUGS (15)
  1. IMBRUVICA [Suspect]
     Active Substance: IBRUTINIB
     Indication: Chronic lymphocytic leukaemia
     Route: 048
     Dates: start: 202206
  2. IMBRUVICA [Suspect]
     Active Substance: IBRUTINIB
     Indication: Chronic lymphocytic leukaemia
     Route: 048
     Dates: start: 20150701
  3. IMBRUVICA [Suspect]
     Active Substance: IBRUTINIB
     Indication: Chronic lymphocytic leukaemia
     Route: 048
     Dates: start: 20180601
  4. IMBRUVICA [Suspect]
     Active Substance: IBRUTINIB
     Indication: Chronic lymphocytic leukaemia
     Route: 048
     Dates: start: 20150708, end: 20180601
  5. VESICARE [Concomitant]
     Active Substance: SOLIFENACIN SUCCINATE
     Indication: Bladder spasm
  6. LIPITOR [Concomitant]
     Active Substance: ATORVASTATIN CALCIUM
     Indication: Blood cholesterol abnormal
  7. LISINOPRIL [Concomitant]
     Active Substance: LISINOPRIL
     Indication: Hypertension
  8. CARAFATE [Concomitant]
     Active Substance: SUCRALFATE
     Indication: Nausea
  9. PROTONIX [Concomitant]
     Active Substance: PANTOPRAZOLE SODIUM
     Indication: Abdominal discomfort
  10. COREG [Concomitant]
     Active Substance: CARVEDILOL
     Indication: Hypertension
  11. LEVOTHYROXINE [Concomitant]
     Active Substance: LEVOTHYROXINE
     Indication: Hypothyroidism
  12. MODERNA COVID-19 VACCINE [Concomitant]
     Active Substance: ELASOMERAN
     Indication: COVID-19 immunisation
     Dosage: FIRST DOSE(FREQUENCY- ONE IN ONCE)
     Route: 030
     Dates: start: 20200106, end: 20200106
  13. MODERNA COVID-19 VACCINE [Concomitant]
     Active Substance: ELASOMERAN
     Indication: COVID-19 immunisation
     Dosage: SECOND DOSE(FREQUENCY- ONE IN ONCE)
     Route: 030
     Dates: start: 20200201, end: 20200201
  14. MODERNA COVID-19 VACCINE [Concomitant]
     Active Substance: ELASOMERAN
     Indication: COVID-19 immunisation
     Dosage: FIRST BOOSTER DOSE(FREQUENCY- ONE IN ONCE)
     Route: 030
     Dates: start: 20210818, end: 20210818
  15. MODERNA COVID-19 VACCINE [Concomitant]
     Active Substance: ELASOMERAN
     Indication: COVID-19 immunisation
     Dosage: SECOND BOOSTER DOSE(FREQUENCY- ONE IN ONCE)
     Route: 030
     Dates: start: 20220406, end: 20220406

REACTIONS (18)
  - Loss of consciousness [Recovered/Resolved]
  - Blister [Recovered/Resolved]
  - Immunodeficiency [Unknown]
  - Hypoaesthesia [Unknown]
  - Skin laceration [Recovering/Resolving]
  - Infusion related reaction [Recovered/Resolved]
  - Wound infection fungal [Recovering/Resolving]
  - Intervertebral disc protrusion [Recovering/Resolving]
  - Wound secretion [Not Recovered/Not Resolved]
  - Fusarium infection [Recovered/Resolved]
  - Nausea [Recovered/Resolved]
  - Blister [Recovering/Resolving]
  - Infection [Unknown]
  - Skin burning sensation [Recovered/Resolved]
  - Wound sepsis [Recovering/Resolving]
  - Immunodeficiency [Unknown]
  - Accident [Unknown]
  - Road traffic accident [Unknown]

NARRATIVE: CASE EVENT DATE: 20220101
